FAERS Safety Report 24193969 (Version 2)
Quarter: 2024Q3

REPORT INFORMATION
  Report Type: Spontaneous
  Country: GB (occurrence: None)
  Receive Date: 20240809
  Receipt Date: 20240813
  Transmission Date: 20241017
  Serious: Yes (Other)
  Sender: ASTRAZENECA
  Company Number: 2024A178905

PATIENT
  Age: 43 Year
  Sex: Female
  Weight: 43.9 kg

DRUGS (7)
  1. TEZSPIRE [Suspect]
     Active Substance: TEZEPELUMAB-EKKO
     Indication: Asthma
     Route: 058
     Dates: start: 20240508
  2. ACYCLOVIR [Concomitant]
     Active Substance: ACYCLOVIR
     Route: 048
     Dates: start: 2022
  3. ATOVAQUONE [Concomitant]
     Active Substance: ATOVAQUONE
     Route: 048
  4. BECLOMETHASONE DIPROPIONATE [Concomitant]
     Active Substance: BECLOMETHASONE DIPROPIONATE
     Route: 045
     Dates: start: 2022
  5. BUDESONIDE [Concomitant]
     Active Substance: BUDESONIDE
     Dates: start: 2022
  6. CHOLECALCIFEROL [Concomitant]
     Active Substance: CHOLECALCIFEROL
     Dosage: 2 TABLETS
     Route: 048
     Dates: start: 2022
  7. COLOMYCIN [Concomitant]
     Route: 055
     Dates: start: 2022

REACTIONS (1)
  - Tendonitis [Unknown]
